FAERS Safety Report 6036829-6 (Version None)
Quarter: 2009Q1

REPORT INFORMATION
  Report Type: 
  Country: None (occurrence: None)
  Receive Date: 20090114
  Receipt Date: 20090107
  Transmission Date: 20090719
  Serious: Yes (Other)
  Sender: FDA-Public Use
  Company Number: PHEH2004US00632

PATIENT
  Sex: Female

DRUGS (19)
  1. AREDIA [Suspect]
     Indication: BREAST CANCER METASTATIC
     Dosage: 90 MG, QMO
     Route: 042
     Dates: start: 20000601, end: 20010101
  2. FUROSEMIDE [Concomitant]
     Dosage: 80 MG, QD
  3. PREDNISONE TAB [Concomitant]
     Indication: CHRONIC OBSTRUCTIVE PULMONARY DISEASE
     Dosage: 10 MG, QD
  4. TAMOXIFEN CITRATE [Concomitant]
     Indication: BREAST CANCER
     Dosage: 20 MG, QD
     Dates: start: 20010101
  5. ZOLOFT [Concomitant]
     Dosage: 200 MG, QD
  6. ASPIRIN [Concomitant]
     Indication: PROPHYLAXIS
     Dosage: 100 MG, UNK
  7. PRILOSEC [Concomitant]
     Indication: GASTROOESOPHAGEAL REFLUX DISEASE
     Dosage: 20 MG, QD
     Dates: start: 20011022
  8. CALCIUM [Concomitant]
     Indication: MINERAL SUPPLEMENTATION
     Dosage: 600 MG, QD
  9. SINGULAIR [Concomitant]
     Indication: ASTHMA
     Dosage: 10 MG, QD
  10. VITAMIN B6 [Concomitant]
     Indication: VITAMIN SUPPLEMENTATION
     Dosage: 50 MG, QD
  11. ALBUTEROL [Concomitant]
     Dosage: UNK, PRN
  12. SULFATRIM-DS [Concomitant]
     Indication: BRONCHITIS
     Dosage: 1 TAB/ QD
  13. INSULIN [Concomitant]
     Indication: DIABETES MELLITUS
     Dates: start: 19950101
  14. ZAROXOLYN [Concomitant]
     Indication: HYPERTENSION
     Dosage: 200 MG, QD
  15. DOXORUBICIN HCL [Concomitant]
     Indication: BREAST CANCER
     Dosage: 60 MG/M2, UNK
     Dates: start: 20000504, end: 20000706
  16. TAXOL [Concomitant]
     Indication: BREAST CANCER
     Dosage: 80 MG/M2, QW
     Dates: start: 20000725, end: 20001012
  17. CYTOXAN [Concomitant]
     Indication: BREAST CANCER
     Dosage: 600 MG/M2, Q3WKS
     Dates: start: 20000504, end: 20000706
  18. LEVOXYL [Concomitant]
     Dosage: .75 MG, QD
  19. ADVAIR DISKUS 250/50 [Concomitant]

REACTIONS (6)
  - BONE DISORDER [None]
  - GINGIVAL ERYTHEMA [None]
  - OSTEONECROSIS [None]
  - PAIN [None]
  - SWELLING [None]
  - WOUND DRAINAGE [None]
